FAERS Safety Report 8681823 (Version 2)
Quarter: 2013Q4

REPORT INFORMATION
  Report Type: Spontaneous
  Country: IT (occurrence: IT)
  Receive Date: 20120725
  Receipt Date: 20131218
  Transmission Date: 20140711
  Serious: Yes (Hospitalization)
  Sender: FDA-Public Use
  Company Number: IT-ROCHE-1088452

PATIENT
  Age: 71 Year
  Sex: Male

DRUGS (4)
  1. VESANOID [Suspect]
     Indication: ACUTE LEUKAEMIA
     Route: 048
     Dates: start: 20120101, end: 20120330
  2. TAVANIC [Concomitant]
     Route: 048
     Dates: start: 20120614, end: 20120626
  3. CASODEX [Concomitant]
     Route: 048
     Dates: start: 20120111, end: 20120626
  4. ZYLORIC [Concomitant]
     Route: 048
     Dates: start: 20120620, end: 20120626

REACTIONS (2)
  - Hypercalcaemia [Recovering/Resolving]
  - Hyperhidrosis [Recovering/Resolving]
